FAERS Safety Report 5292607-7 (Version None)
Quarter: 2007Q2

REPORT INFORMATION
  Report Type: 
  Country: None (occurrence: None)
  Receive Date: 20070404
  Receipt Date: 20070322
  Transmission Date: 20071010
  Serious: Yes (Hospitalization)
  Sender: FDA-Public Use
  Company Number: GXKR2007GR02756

PATIENT
  Age: 30 Year
  Sex: Male

DRUGS (1)
  1. CO-TRIMOXAZOLE (NGX) (SULFAMETHOXAZOLE, TRIMETHROPIUM) UNKNOWN [Suspect]
     Indication: URINARY TRACT INFECTION
     Dosage: 1920 UNK, BID,ORAL
     Route: 048

REACTIONS (11)
  - ACCIDENTAL EXPOSURE [None]
  - CHOLESTASIS [None]
  - COUGH [None]
  - GENERAL PHYSICAL HEALTH DETERIORATION [None]
  - HEPATITIS CHOLESTATIC [None]
  - HYPERSENSITIVITY [None]
  - INCORRECT DOSE ADMINISTERED [None]
  - MEDICATION ERROR [None]
  - OXYGEN SATURATION DECREASED [None]
  - PITTING OEDEMA [None]
  - SPLENOMEGALY [None]
